FAERS Safety Report 25935857 (Version 1)
Quarter: 2025Q4

REPORT INFORMATION
  Report Type: Spontaneous
  Country: US (occurrence: US)
  Receive Date: 20251017
  Receipt Date: 20251017
  Transmission Date: 20260118
  Serious: No
  Sender: LEADING PHARMA
  Company Number: US-LEADINGPHARMA-US-2025LEASPO00187

PATIENT
  Sex: Female

DRUGS (2)
  1. FOLIC ACID [Suspect]
     Active Substance: FOLIC ACID
     Indication: Product used for unknown indication
     Route: 065
     Dates: start: 2025
  2. EVENING PRIMROSE OIL [Suspect]
     Active Substance: EVENING PRIMROSE OIL
     Indication: Product used for unknown indication
     Route: 065
     Dates: start: 2025

REACTIONS (1)
  - Menstrual disorder [Unknown]

NARRATIVE: CASE EVENT DATE: 20250101
